FAERS Safety Report 9880663 (Version 1)
Quarter: 2014Q1

REPORT INFORMATION
  Report Type: Spontaneous
  Country: US (occurrence: None)
  Receive Date: 20140206
  Receipt Date: 20140206
  Transmission Date: 20141002
  Serious: No
  Sender: FDA-Public Use
  Company Number: None

PATIENT
  Age: 70 Year
  Sex: Female
  Weight: 69.9 kg

DRUGS (1)
  1. ISOVUE 370 [Suspect]
     Indication: COMPUTERISED TOMOGRAM
     Route: 042
     Dates: start: 20131029

REACTIONS (4)
  - Oral pruritus [None]
  - Lip pruritus [None]
  - Oral mucosal erythema [None]
  - Urticaria [None]
